FAERS Safety Report 17242013 (Version 1)
Quarter: 2020Q1

REPORT INFORMATION
  Report Type: Spontaneous
  Country: US (occurrence: US)
  Receive Date: 20200106
  Receipt Date: 20200106
  Transmission Date: 20200409
  Serious: Yes (Hospitalization)
  Sender: FDA-Public Use
  Company Number: None

PATIENT
  Age: 27 Year
  Sex: Female

DRUGS (15)
  1. PRAZOSIN. [Concomitant]
     Active Substance: PRAZOSIN
  2. ZOLPIDEM [Concomitant]
     Active Substance: ZOLPIDEM TARTRATE
  3. CARAFATE [Concomitant]
     Active Substance: SUCRALFATE
  4. OMEPRAZOLE. [Concomitant]
     Active Substance: OMEPRAZOLE
  5. MESALAMINE. [Concomitant]
     Active Substance: MESALAMINE
  6. DIVALPROEX [Concomitant]
     Active Substance: DIVALPROEX SODIUM
  7. LEVOTHYROXIN [Concomitant]
     Active Substance: LEVOTHYROXINE
  8. OLANZAPINE. [Concomitant]
     Active Substance: OLANZAPINE
  9. DIAZEPAM. [Concomitant]
     Active Substance: DIAZEPAM
  10. NORETHIN [Concomitant]
  11. REMICADE [Suspect]
     Active Substance: INFLIXIMAB
     Indication: CROHN^S DISEASE
     Dosage: ?          OTHER FREQUENCY:Q 6 WEEKS;?
     Route: 017
     Dates: start: 20171020
  12. ATORVASTATIN [Concomitant]
     Active Substance: ATORVASTATIN
  13. MONTELUKAST [Concomitant]
     Active Substance: MONTELUKAST SODIUM
  14. TRINTELLIX [Concomitant]
     Active Substance: VORTIOXETINE HYDROBROMIDE
  15. PROPRANOLOL [Concomitant]
     Active Substance: PROPRANOLOL HYDROCHLORIDE

REACTIONS (1)
  - Rectal abscess [None]
